FAERS Safety Report 6920758-7 (Version None)
Quarter: 2010Q3

REPORT INFORMATION
  Report Type: 
  Country: None (occurrence: None)
  Receive Date: 20100812
  Receipt Date: 20100803
  Transmission Date: 20110219
  Serious: No
  Sender: FDA-Public Use
  Company Number: US-JNJFOC-20100801171

PATIENT
  Sex: Male
  Weight: 121.56 kg

DRUGS (5)
  1. FENTANYL CITRATE [Suspect]
     Indication: BACK PAIN
     Route: 062
  2. LYRICA [Concomitant]
     Indication: NERVOUS SYSTEM DISORDER
     Dosage: HYPERACTIVE NERVES
     Route: 048
  3. HIGH BLOOD PRESSURE MEDICATION NOS [Concomitant]
     Indication: HYPERTENSION
     Route: 048
  4. ANTIDEPRESSANT MEDICATION, NOS [Concomitant]
     Indication: ANTIDEPRESSANT THERAPY
     Route: 048
  5. GLUCOSAMINE [Concomitant]
     Indication: CHONDROPATHY
     Dosage: TO HELP BUILD CARTILAGE IN JOINTS
     Route: 048

REACTIONS (1)
  - WRONG TECHNIQUE IN DRUG USAGE PROCESS [None]
